FAERS Safety Report 14044254 (Version 1)
Quarter: 2017Q4

REPORT INFORMATION
  Report Type: Spontaneous
  Country: NL (occurrence: NL)
  Receive Date: 20171004
  Receipt Date: 20171004
  Transmission Date: 20180321
  Serious: Yes (Life-Threatening, Hospitalization, Other)
  Sender: FDA-Public Use
  Company Number: NL-MYLANLABS-2017M1061385

PATIENT
  Age: 48 Year
  Sex: Female

DRUGS (2)
  1. HALOPERIDOL. [Concomitant]
     Active Substance: HALOPERIDOL
     Indication: PSYCHOTIC DISORDER
     Dosage: 2 MG/DAY
     Route: 065
  2. NORTRIPTYLINE [Suspect]
     Active Substance: NORTRIPTYLINE
     Indication: PSYCHOTIC DISORDER
     Dosage: 50 MG/DAY
     Route: 065

REACTIONS (6)
  - Metabolic acidosis [Recovering/Resolving]
  - Electrocardiogram QT prolonged [Recovering/Resolving]
  - Poisoning [Recovering/Resolving]
  - False positive investigation result [Unknown]
  - Hypotension [Recovering/Resolving]
  - Loss of consciousness [Recovering/Resolving]
